FAERS Safety Report 8606573-7 (Version None)
Quarter: 2012Q3

REPORT INFORMATION
  Report Type: 
  Country: None (occurrence: None)
  Receive Date: 20120820
  Receipt Date: 20120809
  Transmission Date: 20120928
  Serious: Yes (Other)
  Sender: FDA-Public Use
  Company Number: US-GENZYME-CART-1000086

PATIENT

DRUGS (1)
  1. CARTICEL [Suspect]
     Indication: CARTILAGE INJURY
     Dosage: UNK
     Route: 014

REACTIONS (2)
  - MUSCULOSKELETAL STIFFNESS [None]
  - SKIN INFECTION [None]
